FAERS Safety Report 13783295 (Version 1)
Quarter: 2017Q3

REPORT INFORMATION
  Report Type: Report from Study
  Country: US (occurrence: US)
  Receive Date: 20170724
  Receipt Date: 20170724
  Transmission Date: 20171127
  Serious: Yes (Other)
  Sender: FDA-Public Use
  Company Number: US-PFIZER INC-2017312541

PATIENT
  Age: 69 Year
  Sex: Female

DRUGS (4)
  1. CELEBREX [Suspect]
     Active Substance: CELECOXIB
     Dosage: UNK, WEEKLY (3 IN 1 WK)
  2. HUMIRA [Suspect]
     Active Substance: ADALIMUMAB
     Indication: PSORIATIC ARTHROPATHY
     Dosage: 40 MG, WEEKLY (1 IN 2 WK)
     Route: 058
     Dates: end: 2017
  3. CELEBREX [Suspect]
     Active Substance: CELECOXIB
     Indication: PSORIATIC ARTHROPATHY
     Dosage: UNK, DAILY (1 IN 1 D)
  4. HUMIRA [Suspect]
     Active Substance: ADALIMUMAB
     Indication: PSORIATIC ARTHROPATHY
     Dosage: UNK (40 MG/0.8 ML (40 MILLIGRAM, SOLUTION FOR INJECTION IN PRE - FILLED PEN))
     Route: 058
     Dates: start: 2006, end: 2006

REACTIONS (11)
  - Barrett^s oesophagus [Recovering/Resolving]
  - Oesophageal ulcer [Recovering/Resolving]
  - Psoriatic arthropathy [Not Recovered/Not Resolved]
  - Condition aggravated [Not Recovered/Not Resolved]
  - Drug effect decreased [Unknown]
  - Sinusitis [Recovered/Resolved]
  - Asthma [Recovering/Resolving]
  - Product use in unapproved indication [Unknown]
  - Respiratory tract infection [Recovered/Resolved]
  - Wrong technique in product usage process [Unknown]
  - Incorrect dose administered [Unknown]

NARRATIVE: CASE EVENT DATE: 201612
